FAERS Safety Report 16107552 (Version 1)
Quarter: 2019Q1

REPORT INFORMATION
  Report Type: Spontaneous
  Country: US (occurrence: US)
  Receive Date: 20190322
  Receipt Date: 20190322
  Transmission Date: 20190418
  Serious: Yes (Other)
  Sender: FDA-Public Use
  Company Number: US-ASTRAZENECA-2019SE44716

PATIENT
  Age: 25333 Day
  Sex: Male
  Weight: 71.7 kg

DRUGS (2)
  1. BEVESPI AEROSPHERE [Suspect]
     Active Substance: FORMOTEROL FUMARATE\GLYCOPYRROLATE
     Indication: CHRONIC OBSTRUCTIVE PULMONARY DISEASE
     Dosage: 9MCG/4.8MCG 2 PUFFS TWICE A DAY
     Route: 055
     Dates: start: 20190311
  2. PERCOCET [Concomitant]
     Active Substance: ACETAMINOPHEN\OXYCODONE HYDROCHLORIDE
     Indication: INTERVERTEBRAL DISC OPERATION
     Dosage: 7.5
     Route: 048

REACTIONS (11)
  - Burning sensation [Unknown]
  - Lung disorder [Unknown]
  - Chest pain [Unknown]
  - Myocardial infarction [Unknown]
  - Memory impairment [Unknown]
  - Pulmonary congestion [Unknown]
  - Lymphadenopathy [Unknown]
  - Gastrooesophageal reflux disease [Unknown]
  - Chest discomfort [Unknown]
  - Dyspnoea [Unknown]
  - Wheezing [Unknown]

NARRATIVE: CASE EVENT DATE: 20190313
